FAERS Safety Report 5453664-8 (Version None)
Quarter: 2007Q3

REPORT INFORMATION
  Report Type: 
  Country: None (occurrence: None)
  Receive Date: 20070917
  Receipt Date: 20070820
  Transmission Date: 20080115
  Serious: Yes (Hospitalization)
  Sender: FDA-Public Use
  Company Number: ZA-ELI_LILLY_AND_COMPANY-ZA200708005891

PATIENT
  Age: 63 Year
  Sex: Female

DRUGS (4)
  1. FORTEO [Suspect]
     Indication: OSTEOPOROSIS
     Dosage: 20 UG, DAILY (1/D)
     Route: 058
     Dates: start: 20070224
  2. PREMARIN [Concomitant]
     Indication: HORMONE REPLACEMENT THERAPY
     Dosage: 1 D/F, DAILY (1/D)
     Route: 048
  3. SIMVASTATIN [Concomitant]
     Indication: HYPERCHOLESTEROLAEMIA
     Dosage: UNK, UNKNOWN
     Route: 048
     Dates: start: 20050101
  4. MULTI-VITAMIN [Concomitant]
     Indication: MEDICAL DIET
     Dosage: UNK, UNKNOWN
     Route: 048

REACTIONS (4)
  - CONCUSSION [None]
  - DIZZINESS [None]
  - DYSPEPSIA [None]
  - FALL [None]
